FAERS Safety Report 14198385 (Version 1)
Quarter: 2017Q4

REPORT INFORMATION
  Report Type: Spontaneous
  Country: JP (occurrence: JP)
  Receive Date: 20171117
  Receipt Date: 20171117
  Transmission Date: 20180321
  Serious: Yes (Other)
  Sender: FDA-Public Use
  Company Number: JP-SHIRE-JP201729141

PATIENT

DRUGS (4)
  1. INTUNIV [Suspect]
     Active Substance: GUANFACINE HYDROCHLORIDE
     Indication: ATTENTION DEFICIT/HYPERACTIVITY DISORDER
     Dosage: 0.5 MG, 1X/DAY:QD
     Route: 048
     Dates: start: 20170731
  2. INTUNIV [Suspect]
     Active Substance: GUANFACINE HYDROCHLORIDE
     Dosage: 0.25 MG, 1X/DAY:QD
     Route: 048
     Dates: start: 20170814
  3. ROZEREM [Concomitant]
     Active Substance: RAMELTEON
     Indication: INSOMNIA
  4. INTUNIV [Suspect]
     Active Substance: GUANFACINE HYDROCHLORIDE
     Dosage: 0.5 MG, 1X/DAY:QD
     Route: 048
     Dates: start: 20170824

REACTIONS (3)
  - Stupor [Unknown]
  - Medication error [Unknown]
  - Somnolence [Unknown]

NARRATIVE: CASE EVENT DATE: 201708
